FAERS Safety Report 4715251-6 (Version None)
Quarter: 2005Q3

REPORT INFORMATION
  Report Type: 
  Country: None (occurrence: None)
  Receive Date: 20050715
  Receipt Date: 20050517
  Transmission Date: 20060218
  Serious: Yes (Other)
  Sender: FDA-Public Use
  Company Number: JP-SANOFI-SYNTHELABO-A01200503445

PATIENT
  Sex: Female

DRUGS (3)
  1. ELPLAT [Suspect]
     Indication: COLON CANCER
     Route: 041
     Dates: start: 20050427, end: 20050427
  2. FLUOROURACIL [Concomitant]
     Indication: COLON CANCER
     Route: 042
     Dates: start: 20050427, end: 20050428
  3. ISOVORIN [Concomitant]
     Indication: COLON CANCER
     Route: 041
     Dates: start: 20050427, end: 20050428

REACTIONS (1)
  - PANCYTOPENIA [None]
